FAERS Safety Report 17982316 (Version 1)
Quarter: 2020Q3

REPORT INFORMATION
  Report Type: Spontaneous
  Country: US (occurrence: US)
  Receive Date: 20200701
  Receipt Date: 20200701
  Transmission Date: 20201103
  Serious: Yes (Disabling)
  Sender: FDA-Public Use
  Company Number: None

PATIENT
  Age: 69 Year
  Sex: Female
  Weight: 49.9 kg

DRUGS (18)
  1. ZYRTEC [Concomitant]
     Active Substance: CETIRIZINE HYDROCHLORIDE
  2. VITAMIN B12 [Concomitant]
     Active Substance: CYANOCOBALAMIN
  3. EVENING PRIMROSE [Concomitant]
  4. TYLENOL [Concomitant]
     Active Substance: ACETAMINOPHEN
  5. FINASTERIDE. [Concomitant]
     Active Substance: FINASTERIDE
  6. BIOTIN [Concomitant]
     Active Substance: BIOTIN
  7. PROLIA [Suspect]
     Active Substance: DENOSUMAB
     Indication: OSTEOPOROSIS
     Dosage: ?          OTHER FREQUENCY:EVERY 6 MONTHS;?
     Route: 058
     Dates: start: 20180509, end: 202001
  8. ESTRA/NORETH [Concomitant]
  9. DULOXETINE HYDROCHLORIDE. [Concomitant]
     Active Substance: DULOXETINE HYDROCHLORIDE
  10. MULTI?VITAMIN [Concomitant]
     Active Substance: .ALPHA.-TOCOPHEROL ACETATE, DL-\ASCORBIC ACID\CYANOCOBALAMIN\FLUORIDE ION\FOLIC ACID\NIACIN\PYRIDOXINE\RIBOFLAVIN\THIAMINE\VITAMIN A\VITAMIN D
  11. MK?7 [Concomitant]
  12. LORAZEPAM. [Concomitant]
     Active Substance: LORAZEPAM
  13. ALLERGY SHOTS [Concomitant]
     Active Substance: UNSPECIFIED INGREDIENT
  14. COLLAGEN [Concomitant]
     Active Substance: COLLAGEN
  15. CALCIUM [Concomitant]
     Active Substance: CALCIUM
  16. COQ10 [Concomitant]
     Active Substance: UBIDECARENONE
  17. MAGNESIUM [Concomitant]
     Active Substance: MAGNESIUM
  18. FISH OIL [Concomitant]
     Active Substance: FISH OIL

REACTIONS (18)
  - Fatigue [None]
  - Bone pain [None]
  - Skin lesion [None]
  - Oral mucosal blistering [None]
  - Depression [None]
  - Arthralgia [None]
  - Osteoarthritis [None]
  - Myalgia [None]
  - Nail disorder [None]
  - Night sweats [None]
  - Gastrooesophageal reflux disease [None]
  - Appendicitis [None]
  - Anxiety [None]
  - Alopecia [None]
  - Madarosis [None]
  - Headache [None]
  - Gingivitis [None]
  - Lupus-like syndrome [None]

NARRATIVE: CASE EVENT DATE: 20180509
